FAERS Safety Report 5505238-8 (Version None)
Quarter: 2007Q4

REPORT INFORMATION
  Report Type: 
  Country: None (occurrence: None)
  Receive Date: 20071102
  Receipt Date: 20071022
  Transmission Date: 20080405
  Serious: Yes (Other)
  Sender: FDA-Public Use
  Company Number: US-GENENTECH-247742

PATIENT
  Sex: Male
  Weight: 72.562 kg

DRUGS (2)
  1. AVASTIN [Suspect]
     Indication: GLIOBLASTOMA
     Dosage: 387 MG, Q2W
     Route: 042
     Dates: start: 20070725
  2. CPT-11 [Concomitant]
     Indication: GLIOBLASTOMA
     Dosage: 240 MG, UNK
     Dates: start: 20070725

REACTIONS (1)
  - APPENDICITIS PERFORATED [None]
